FAERS Safety Report 8854089 (Version 1)
Quarter: 2012Q4

REPORT INFORMATION
  Report Type: Spontaneous
  Country: US (occurrence: None)
  Receive Date: 20121023
  Receipt Date: 20121023
  Transmission Date: 20130627
  Serious: No
  Sender: FDA-Public Use
  Company Number: None

PATIENT
  Age: 45 Year
  Sex: Female

DRUGS (1)
  1. COMPAZINE [Suspect]
     Dosage: 10 mg IV
     Route: 042
     Dates: start: 20120926, end: 20120926

REACTIONS (3)
  - Headache [None]
  - Hypoaesthesia [None]
  - Paraesthesia [None]
